FAERS Safety Report 19886979 (Version 2)
Quarter: 2021Q4

REPORT INFORMATION
  Report Type: Spontaneous
  Country: AT (occurrence: AT)
  Receive Date: 20210927
  Receipt Date: 20211001
  Transmission Date: 20220304
  Serious: Yes (Other)
  Sender: FDA-Public Use
  Company Number: AT-BAXTER-2021BAX008641

PATIENT
  Age: 60 Year
  Sex: Female

DRUGS (18)
  1. OXALIPLATIN [Suspect]
     Active Substance: OXALIPLATIN
     Indication: Diffuse large B-cell lymphoma
     Dosage: UNK UNK, CYCLE,RADOX
     Route: 065
     Dates: start: 202007, end: 202008
  2. DEXAMETHASONE [Suspect]
     Active Substance: DEXAMETHASONE
     Indication: Diffuse large B-cell lymphoma
     Dosage: UNK, CYCLE, RADOX
     Route: 065
     Dates: start: 202007, end: 202008
  3. CARBOPLATIN [Suspect]
     Active Substance: CARBOPLATIN
     Indication: Diffuse large B-cell lymphoma refractory
     Dosage: UNK UNK, CYCLE, 1 CYCLE
     Route: 065
     Dates: start: 202006, end: 202007
  4. CARBOPLATIN [Suspect]
     Active Substance: CARBOPLATIN
     Dosage: UNK
  5. ETOPOSIDE [Suspect]
     Active Substance: ETOPOSIDE
     Indication: Diffuse large B-cell lymphoma refractory
     Dosage: UNK UNK, CYCLE
     Route: 065
     Dates: start: 202006, end: 202007
  6. ETOPOSIDE [Suspect]
     Active Substance: ETOPOSIDE
     Dosage: UNK
  7. PREDNISONE [Suspect]
     Active Substance: PREDNISONE
     Indication: Diffuse large B-cell lymphoma
     Dosage: UNK UNK, CYCLE, 8 CYCLES ADMINISTERED IN TOTAL
     Route: 065
     Dates: start: 201909, end: 202002
  8. IFOSFAMIDE [Suspect]
     Active Substance: IFOSFAMIDE
     Indication: Diffuse large B-cell lymphoma
     Dosage: UNK UNK, CYCLE, 1 CYCLE
     Route: 065
     Dates: start: 202006, end: 202007
  9. CYCLOPHOSPHAMIDE [Suspect]
     Active Substance: CYCLOPHOSPHAMIDE
     Indication: Diffuse large B-cell lymphoma
     Dosage: UNK UNK, CYCLE, 8 CYCLES ADMINISTERED IN TOTAL
     Route: 065
     Dates: start: 201909, end: 202002
  10. DOXORUBICIN HYDROCHLORIDE [Suspect]
     Active Substance: DOXORUBICIN HYDROCHLORIDE
     Indication: Diffuse large B-cell lymphoma
     Dosage: UNK UNK, CYCLE, 8 CYCLES ADMINISTERED IN TOTAL
     Route: 065
     Dates: start: 201909, end: 202002
  11. RITUXIMAB [Suspect]
     Active Substance: RITUXIMAB
     Indication: Diffuse large B-cell lymphoma
     Dosage: UNK UNK, CYCLE, 8 CYCLES ADMINISTERED IN TOTAL
     Route: 065
     Dates: start: 201909, end: 202002
  12. RITUXIMAB [Suspect]
     Active Substance: RITUXIMAB
     Dosage: UNK UNK, CYCLE
     Dates: start: 202006, end: 202007
  13. RITUXIMAB [Suspect]
     Active Substance: RITUXIMAB
     Dosage: UNK
  14. VINCRISTINE [Suspect]
     Active Substance: VINCRISTINE
     Indication: Diffuse large B-cell lymphoma
     Dosage: UNK UNK, CYCLE, 8 CYCLES ADMINISTERED IN TOTAL
     Route: 065
     Dates: start: 201909, end: 202002
  15. CYTARABINE [Suspect]
     Active Substance: CYTARABINE
     Indication: Diffuse large B-cell lymphoma
     Dosage: UNK UNK, CYCLE, RADOX
     Route: 065
     Dates: start: 202007, end: 202008
  16. IFOSFAMIDE [Suspect]
     Active Substance: IFOSFAMIDE
     Indication: Product used for unknown indication
     Dosage: UNK
  17. OBINUTUZUMAB [Concomitant]
     Active Substance: OBINUTUZUMAB
     Indication: Product used for unknown indication
     Dosage: UNK UNK, CYCLE
     Route: 065
     Dates: start: 202005
  18. VENETOCLAX [Concomitant]
     Active Substance: VENETOCLAX
     Indication: Product used for unknown indication
     Dosage: UNK UNK, CYCLE
     Route: 065
     Dates: start: 202005

REACTIONS (5)
  - Renal impairment [Unknown]
  - Disease progression [Unknown]
  - General physical health deterioration [Unknown]
  - Bone pain [Unknown]
  - Off label use [Unknown]

NARRATIVE: CASE EVENT DATE: 20200101
